FAERS Safety Report 8091418-7 (Version None)
Quarter: 2012Q1

REPORT INFORMATION
  Report Type: 
  Country: None (occurrence: None)
  Receive Date: 20120129
  Receipt Date: 20111101
  Transmission Date: 20120608
  Serious: No
  Sender: FDA-Public Use
  Company Number: US-ABBOTT-09P-163-0571696-00

PATIENT
  Sex: Male
  Weight: 131.66 kg

DRUGS (6)
  1. HUMIRA [Suspect]
     Indication: CROHN'S DISEASE
     Dates: start: 20081105
  2. OMEPRAZOLE [Concomitant]
     Indication: PRODUCT USED FOR UNKNOWN INDICATION
     Dosage: 20 MG PILL
  3. UNKNOWN MUSCLE RELAXANT [Concomitant]
     Indication: BACK PAIN
  4. OMEPRAZOLE [Concomitant]
     Dosage: TWO PILLS DAILY
  5. TRAMADOL HCL [Concomitant]
     Indication: PAIN
  6. UNKNOWN MUSCLE RELAXANT [Concomitant]
     Indication: MUSCLE STRAIN

REACTIONS (16)
  - RHINORRHOEA [None]
  - DIARRHOEA [None]
  - WEIGHT INCREASED [None]
  - VITAMIN D DECREASED [None]
  - OEDEMA PERIPHERAL [None]
  - HYPERSOMNIA [None]
  - GOUT [None]
  - DIZZINESS [None]
  - ABDOMINAL DISTENSION [None]
  - ARTHRALGIA [None]
  - BACK PAIN [None]
  - FEELING ABNORMAL [None]
  - CLOSTRIDIAL INFECTION [None]
  - RASH MACULAR [None]
  - MUSCLE STRAIN [None]
  - ABDOMINAL PAIN [None]
